FAERS Safety Report 8138141-8 (Version None)
Quarter: 2012Q1

REPORT INFORMATION
  Report Type: 
  Country: None (occurrence: None)
  Receive Date: 20120215
  Receipt Date: 20120209
  Transmission Date: 20120608
  Serious: Yes (Other)
  Sender: FDA-Public Use
  Company Number: DE-ABBOTT-11P-062-0873133-00

PATIENT
  Sex: Male

DRUGS (7)
  1. HUMIRA [Suspect]
     Indication: RHEUMATOID ARTHRITIS
     Route: 058
     Dates: start: 20100628, end: 20111101
  2. CORTISONE ACETATE [Concomitant]
     Indication: RHEUMATOID ARTHRITIS
  3. IBUPROFEN [Concomitant]
     Indication: RHEUMATOID ARTHRITIS
     Route: 048
  4. ANTIHYPERTENSIVE DRUG [Concomitant]
  5. ANTIHYPERTENSIVE DRUG [Concomitant]
     Indication: HYPERTENSION
  6. METHOTREXATE SODIUM [Concomitant]
     Indication: RHEUMATOID ARTHRITIS
  7. ANTIHYPERTENSIVE DRUG [Concomitant]

REACTIONS (1)
  - KNEE DEFORMITY [None]
